FAERS Safety Report 8158747-X (Version None)
Quarter: 2012Q1

REPORT INFORMATION
  Report Type: 
  Country: None (occurrence: None)
  Receive Date: 20120223
  Receipt Date: 20120214
  Transmission Date: 20120608
  Serious: Yes (Hospitalization, Other)
  Sender: FDA-Public Use
  Company Number: FR-PFIZER INC-2012045395

PATIENT
  Age: 58 Year
  Sex: Male

DRUGS (2)
  1. CORDARONE [Suspect]
     Indication: PRODUCT USED FOR UNKNOWN INDICATION
     Dosage: 100 MG DAILY
     Route: 048
     Dates: start: 20111215, end: 20111221
  2. PREVISCAN [Suspect]
     Dosage: 20 MG
     Route: 048
     Dates: start: 20111212, end: 20111221

REACTIONS (2)
  - VASCULITIS NECROTISING [None]
  - CYTOLYTIC HEPATITIS [None]
